FAERS Safety Report 9860289 (Version 2)
Quarter: 2014Q1

REPORT INFORMATION
  Report Type: Spontaneous
  Country: US (occurrence: US)
  Receive Date: 20140201
  Receipt Date: 20140303
  Transmission Date: 20141002
  Serious: No
  Sender: FDA-Public Use
  Company Number: US-B.I. PHARMACEUTICALS,INC./RIDGEFIELD-2014-BI-03301BP

PATIENT
  Age: 52 Year
  Sex: Male
  Weight: 65 kg

DRUGS (4)
  1. SPIRIVA [Suspect]
     Indication: CHRONIC OBSTRUCTIVE PULMONARY DISEASE
     Dosage: 18 MCG
     Route: 055
     Dates: start: 2009
  2. PROAIR [Concomitant]
     Indication: CHRONIC OBSTRUCTIVE PULMONARY DISEASE
     Dosage: FORMULATION: INHALATION AEROSOL
     Route: 055
  3. FLUTICASONE PIONATE [Concomitant]
     Indication: SINUSITIS
     Dosage: FORMULATION:NASAL SPRAY; STRENGTH: 1 SPRAY EACH NOSTRIL; DAILY DOSE: 2 SPRAYS
     Route: 045
  4. PRIMATENE [Concomitant]
     Indication: CHRONIC OBSTRUCTIVE PULMONARY DISEASE
     Dosage: 8 ANZ
     Route: 048

REACTIONS (1)
  - Dyspnoea [Not Recovered/Not Resolved]
